FAERS Safety Report 9134211 (Version 2)
Quarter: 2013Q2

REPORT INFORMATION
  Report Type: Spontaneous
  Country: US (occurrence: US)
  Receive Date: 20130304
  Receipt Date: 20130405
  Transmission Date: 20140414
  Serious: No
  Sender: FDA-Public Use
  Company Number: US-BIOGENIDEC-2013BI018248

PATIENT
  Age: 32 Year
  Sex: Female

DRUGS (2)
  1. TYSABRI [Suspect]
     Indication: MULTIPLE SCLEROSIS
     Route: 042
     Dates: start: 20070514, end: 20101020
  2. TYSABRI [Suspect]
     Indication: MULTIPLE SCLEROSIS
     Route: 042
     Dates: start: 20121223

REACTIONS (12)
  - Back pain [Not Recovered/Not Resolved]
  - Aphonia [Recovered/Resolved]
  - Rash papular [Not Recovered/Not Resolved]
  - Alopecia [Recovered/Resolved]
  - Hyperaesthesia [Recovered/Resolved]
  - Rash [Not Recovered/Not Resolved]
  - Pruritus [Not Recovered/Not Resolved]
  - Pyrexia [Recovered/Resolved]
  - Chest pain [Not Recovered/Not Resolved]
  - Bronchitis [Recovered/Resolved]
  - Urinary tract infection [Recovered/Resolved]
  - Vaginitis bacterial [Not Recovered/Not Resolved]
